FAERS Safety Report 7368591-9 (Version None)
Quarter: 2011Q1

REPORT INFORMATION
  Report Type: 
  Country: None (occurrence: None)
  Receive Date: 20110323
  Receipt Date: 20110315
  Transmission Date: 20110831
  Serious: Yes (Other)
  Sender: FDA-Public Use
  Company Number: US-JNJFOC-20100805567

PATIENT
  Sex: Female

DRUGS (6)
  1. LEVOFLOXACIN [Suspect]
     Indication: CYSTITIS
     Route: 048
  2. LEVOFLOXACIN [Suspect]
     Indication: RESPIRATORY TRACT INFECTION
     Route: 048
  3. LEVOFLOXACIN [Suspect]
     Route: 048
  4. LEVOFLOXACIN [Suspect]
     Route: 048
  5. LEVOFLOXACIN [Suspect]
     Route: 048
  6. LEVOFLOXACIN [Suspect]
     Route: 048

REACTIONS (6)
  - TENDON INJURY [None]
  - TENDON RUPTURE [None]
  - ROTATOR CUFF SYNDROME [None]
  - MENISCUS LESION [None]
  - DEPRESSION [None]
  - TENDONITIS [None]
